FAERS Safety Report 7876576-9 (Version None)
Quarter: 2011Q4

REPORT INFORMATION
  Report Type: 
  Country: None (occurrence: None)
  Receive Date: 20111031
  Receipt Date: 20111018
  Transmission Date: 20120403
  Serious: Yes (Hospitalization)
  Sender: FDA-Public Use
  Company Number: TW-CELGENEUS-153-50794-11102393

PATIENT
  Sex: Male
  Weight: 68.6 kg

DRUGS (8)
  1. VIDAZA [Suspect]
     Indication: ACUTE MYELOID LEUKAEMIA
     Dosage: 134 MILLIGRAM/SQ. METER
     Route: 065
     Dates: start: 20110620, end: 20110915
  2. VIDAZA [Suspect]
     Dosage: 130 MILLIGRAM
     Route: 065
     Dates: start: 20110726
  3. LORAZEPAM [Concomitant]
     Indication: INSOMNIA
     Dosage: 1 MILLIGRAM
     Route: 065
     Dates: start: 20110801
  4. TAMSULOSIN HCL [Concomitant]
     Dosage: .2 MILLIGRAM
     Route: 065
     Dates: start: 20110824
  5. VIDAZA [Suspect]
     Dosage: 131 MILLIGRAM
     Route: 065
     Dates: start: 20110906, end: 20110915
  6. PROPIVERINE [Concomitant]
     Dosage: 7.5 MILLIGRAM
     Route: 065
     Dates: start: 20110824
  7. VIDAZA [Suspect]
     Indication: MYELODYSPLASTIC SYNDROME
     Dosage: 136 MILLIGRAM
     Route: 065
     Dates: start: 20110509
  8. SILYMARIN [Concomitant]
     Indication: HEPATITIS
     Dosage: 150 MILLIGRAM
     Route: 065
     Dates: start: 20110309

REACTIONS (1)
  - EPISTAXIS [None]
